FAERS Safety Report 7224453-9 (Version None)
Quarter: 2011Q1

REPORT INFORMATION
  Report Type: 
  Country: None (occurrence: None)
  Receive Date: 20110113
  Receipt Date: 20110104
  Transmission Date: 20110831
  Serious: Yes (Other)
  Sender: FDA-Public Use
  Company Number: NL-JNJFOC-20110102300

PATIENT
  Weight: 4.42 kg

DRUGS (2)
  1. RISPERDONE [Suspect]
     Indication: DRUG EXPOSURE DURING PREGNANCY
     Route: 064
  2. RISPERDONE [Suspect]
     Indication: DRUG EXPOSURE VIA BREAST MILK
     Route: 064

REACTIONS (3)
  - CLAVICLE FRACTURE [None]
  - LARGE FOR DATES BABY [None]
  - BREAST FEEDING [None]
